FAERS Safety Report 12365422 (Version 1)
Quarter: 2016Q2

REPORT INFORMATION
  Report Type: Spontaneous
  Country: GB (occurrence: GB)
  Receive Date: 20160512
  Receipt Date: 20160512
  Transmission Date: 20160815
  Serious: Yes (Other)
  Sender: FDA-Public Use
  Company Number: PHFR2016GB003889

PATIENT
  Age: 64 Year
  Sex: Male
  Weight: 67.58 kg

DRUGS (10)
  1. MADOPAR [Concomitant]
     Active Substance: BENSERAZIDE HYDROCHLORIDE\LEVODOPA
     Indication: PRODUCT USED FOR UNKNOWN INDICATION
     Dosage: UNK
     Route: 065
  2. ALZEST [Suspect]
     Active Substance: RIVASTIGMINE
     Indication: PRODUCT USED FOR UNKNOWN INDICATION
     Dosage: 4.6 MG
     Route: 062
     Dates: start: 201506
  3. ALZEST [Suspect]
     Active Substance: RIVASTIGMINE
     Dosage: 9.6 MG
     Route: 062
     Dates: start: 201506
  4. VOLEZE [Suspect]
     Active Substance: RIVASTIGMINE
     Dosage: 9.6 MG
     Route: 062
     Dates: start: 201506
  5. ELUDEN [Suspect]
     Active Substance: RIVASTIGMINE
     Dosage: 9.6 MG, UNK
     Route: 062
     Dates: start: 201506
  6. VOLEZE [Suspect]
     Active Substance: RIVASTIGMINE
     Indication: PRODUCT USED FOR UNKNOWN INDICATION
     Dosage: 4.6 MG
     Route: 062
     Dates: start: 201506
  7. PROMETAX [Suspect]
     Active Substance: RIVASTIGMINE
     Indication: PRODUCT USED FOR UNKNOWN INDICATION
     Dosage: 4.6 MG
     Route: 062
     Dates: start: 201506
  8. PROMETAX [Suspect]
     Active Substance: RIVASTIGMINE
     Dosage: 9.6 MG
     Route: 062
     Dates: start: 201506
  9. ELUDEN [Suspect]
     Active Substance: RIVASTIGMINE
     Indication: PRODUCT USED FOR UNKNOWN INDICATION
     Dosage: 4.6 MG, UNK
     Route: 062
     Dates: start: 201506
  10. REQUIP [Concomitant]
     Active Substance: ROPINIROLE HYDROCHLORIDE
     Indication: PRODUCT USED FOR UNKNOWN INDICATION
     Route: 065

REACTIONS (4)
  - Reaction to drug excipients [Unknown]
  - Application site erythema [Not Recovered/Not Resolved]
  - Application site hypersensitivity [Not Recovered/Not Resolved]
  - Application site pruritus [Not Recovered/Not Resolved]
